FAERS Safety Report 9186448 (Version 2)
Quarter: 2013Q3

REPORT INFORMATION
  Report Type: Spontaneous
  Country: US (occurrence: US)
  Receive Date: 20130325
  Receipt Date: 20130926
  Transmission Date: 20140515
  Serious: No
  Sender: FDA-Public Use
  Company Number: US-TEVA-393902USA

PATIENT
  Age: 63 Year
  Sex: Female
  Weight: 62.65 kg

DRUGS (4)
  1. NUVIGIL [Suspect]
     Indication: PRODUCT USED FOR UNKNOWN INDICATION
     Dosage: 150 MG SPLIT IN HALF
     Route: 048
  2. LIPITOR [Concomitant]
     Indication: BLOOD CHOLESTEROL INCREASED
     Dosage: 40 MILLIGRAM DAILY;
  3. FLONASE [Concomitant]
  4. PROPRANOLOL [Concomitant]

REACTIONS (3)
  - Dizziness [Not Recovered/Not Resolved]
  - Disorientation [Unknown]
  - Drug effect increased [Unknown]
